FAERS Safety Report 6999999-9 (Version None)
Quarter: 2010Q3

REPORT INFORMATION
  Report Type: 
  Country: None (occurrence: None)
  Receive Date: 20100920
  Receipt Date: 20070622
  Transmission Date: 20110219
  Serious: Yes (Other)
  Sender: FDA-Public Use
  Company Number: US-ASTRAZENECA-2006UW22407

PATIENT
  Age: 21152 Day
  Sex: Female
  Weight: 58.1 kg

DRUGS (6)
  1. SEROQUEL [Suspect]
     Indication: ANXIETY
     Dosage: 200-2000 MG
     Route: 048
     Dates: start: 20041130
  2. SEROQUEL [Suspect]
     Indication: DEPRESSION
     Dosage: 200-2000 MG
     Route: 048
     Dates: start: 20041130
  3. SEROQUEL [Suspect]
     Indication: SCHIZOPHRENIA
     Dosage: 200-2000 MG
     Route: 048
     Dates: start: 20041130
  4. SEROQUEL [Suspect]
     Route: 048
     Dates: start: 20041208, end: 20080301
  5. SEROQUEL [Suspect]
     Route: 048
     Dates: start: 20041208, end: 20080301
  6. SEROQUEL [Suspect]
     Route: 048
     Dates: start: 20041208, end: 20080301

REACTIONS (3)
  - DIABETES MELLITUS [None]
  - DIABETIC KETOACIDOSIS [None]
  - PANCREATITIS [None]
